FAERS Safety Report 5865093-3 (Version None)
Quarter: 2008Q3

REPORT INFORMATION
  Report Type: 
  Country: None (occurrence: None)
  Receive Date: 20080829
  Receipt Date: 20080826
  Transmission Date: 20090109
  Serious: Yes (Other)
  Sender: FDA-Public Use
  Company Number: A0742025A

PATIENT
  Age: 42 Year
  Sex: Male

DRUGS (5)
  1. ZYBAN [Suspect]
     Dosage: 150MG PER DAY
     Route: 048
     Dates: start: 20080723
  2. HYDREA [Concomitant]
     Dosage: 1500MG PER DAY
     Dates: start: 20071201
  3. BLOOD PRESSURE MEDICATION [Concomitant]
     Dates: start: 20071101
  4. ASPIRIN [Concomitant]
     Dosage: 325MG AS REQUIRED
     Dates: start: 20071101
  5. UNSPECIFIED MEDICATION [Concomitant]
     Dosage: 120MG PER DAY
     Dates: start: 20071201

REACTIONS (13)
  - ASOCIAL BEHAVIOUR [None]
  - DISTURBANCE IN ATTENTION [None]
  - DREAMY STATE [None]
  - IMPAIRED DRIVING ABILITY [None]
  - MALAISE [None]
  - MEMORY IMPAIRMENT [None]
  - PAIN IN EXTREMITY [None]
  - SENSORY LOSS [None]
  - SKIN LACERATION [None]
  - SUICIDAL IDEATION [None]
  - THINKING ABNORMAL [None]
  - TREATMENT NONCOMPLIANCE [None]
  - VISUAL IMPAIRMENT [None]
